FAERS Safety Report 4849914-9 (Version None)
Quarter: 2005Q4

REPORT INFORMATION
  Report Type: 
  Country: None (occurrence: None)
  Receive Date: 20051209
  Receipt Date: 20050916
  Transmission Date: 20060501
  Serious: Yes (Hospitalization)
  Sender: FDA-Public Use
  Company Number: US-MERCK-0509USA02671

PATIENT
  Age: 65 Year
  Sex: Female
  Weight: 73 kg

DRUGS (20)
  1. VIOXX [Suspect]
     Indication: ARTHRITIS
     Route: 048
     Dates: start: 20000210, end: 20040502
  2. ASPIRIN [Concomitant]
     Route: 065
  3. BEXTRA [Concomitant]
     Route: 065
  4. CARTIA XT [Concomitant]
     Route: 065
  5. COUMADIN [Concomitant]
     Route: 065
  6. COREG [Concomitant]
     Route: 065
  7. DURAGESIC-100 [Concomitant]
     Route: 065
  8. HYDROCODONE BITARTRATE + ACETAMINOPHEN [Concomitant]
     Route: 065
  9. LISINOPRIL [Concomitant]
     Route: 065
  10. NITROQUICK [Concomitant]
     Route: 065
  11. PAROXETINE [Concomitant]
     Route: 065
  12. PLAVIX [Concomitant]
     Route: 065
  13. PREMARIN [Concomitant]
     Route: 065
  14. PREMPRO [Concomitant]
     Route: 065
  15. PREVACID [Concomitant]
     Route: 065
  16. ACETAMINOPHEN AND PROPOXYPHENE HYDROCHLORIDE [Concomitant]
     Route: 065
  17. PROTONIX [Concomitant]
     Route: 065
  18. TOPROL-XL [Concomitant]
     Route: 065
  19. TRIAMCINOLONE [Concomitant]
     Route: 065
  20. ACETAMINOPHEN [Concomitant]
     Route: 065

REACTIONS (17)
  - ANAEMIA [None]
  - ARTHROPATHY [None]
  - BACTERIAL INFECTION [None]
  - BLOOD CHOLESTEROL INCREASED [None]
  - BREAST CANCER [None]
  - BREAST CANCER FEMALE [None]
  - BREAST MASS [None]
  - CEREBROVASCULAR ACCIDENT [None]
  - DEPRESSION [None]
  - HYPERTONIC BLADDER [None]
  - INSOMNIA [None]
  - NAUSEA [None]
  - OEDEMA PERIPHERAL [None]
  - OVARIAN CYST [None]
  - RENAL FAILURE CHRONIC [None]
  - THYROID DISORDER [None]
  - VIRAL INFECTION [None]
